FAERS Safety Report 8327702-9 (Version None)
Quarter: 2012Q2

REPORT INFORMATION
  Report Type: 
  Country: None (occurrence: None)
  Receive Date: 20120502
  Receipt Date: 20120427
  Transmission Date: 20120825
  Serious: No
  Sender: FDA-Public Use
  Company Number: US-PFIZER INC-2012104905

PATIENT
  Sex: Female

DRUGS (1)
  1. IBUPROFEN (ADVIL) [Suspect]
     Dosage: 75 TABLETS OF 200MG AS A SINGLE DOSE
     Dates: start: 20120427, end: 20120427

REACTIONS (2)
  - VOMITING [None]
  - OVERDOSE [None]
